FAERS Safety Report 14430832 (Version 1)
Quarter: 2018Q1

REPORT INFORMATION
  Report Type: Spontaneous
  Country: US (occurrence: US)
  Receive Date: 20180124
  Receipt Date: 20180124
  Transmission Date: 20180509
  Serious: Yes (Disabling, Other)
  Sender: FDA-Public Use
  Company Number: None

PATIENT
  Age: 58 Year
  Sex: Male
  Weight: 133.36 kg

DRUGS (5)
  1. QUETIAPINE FUMARATE 400MG TAB [Suspect]
     Active Substance: QUETIAPINE FUMARATE
     Indication: SLEEP DISORDER
     Route: 048
     Dates: start: 199910
  2. QUETIAPINE FUMARATE 400MG TAB [Suspect]
     Active Substance: QUETIAPINE FUMARATE
     Indication: DEPRESSION
     Route: 048
     Dates: start: 199910
  3. ALEVE [Concomitant]
     Active Substance: NAPROXEN SODIUM
  4. QUETIAPINE FUMARATE 400MG TAB [Suspect]
     Active Substance: QUETIAPINE FUMARATE
     Indication: COGNITIVE DISORDER
     Route: 048
     Dates: start: 199910
  5. GABAPENTIN. [Concomitant]
     Active Substance: GABAPENTIN

REACTIONS (2)
  - Gynaecomastia [None]
  - Male sexual dysfunction [None]

NARRATIVE: CASE EVENT DATE: 199910
